FAERS Safety Report 25018923 (Version 1)
Quarter: 2025Q1

REPORT INFORMATION
  Report Type: Spontaneous
  Country: US (occurrence: US)
  Receive Date: 20250227
  Receipt Date: 20250227
  Transmission Date: 20250408
  Serious: No
  Sender: AVADEL CNS PHARMACEUTICALS, LLC
  Company Number: US-AVADEL CNS PHARMACEUTICALS, LLC-2025AVA00200

PATIENT
  Sex: Male

DRUGS (11)
  1. LUMRYZ [Suspect]
     Active Substance: SODIUM OXYBATE
     Indication: Narcolepsy
     Dosage: 9 G, 1X/DAY, AT BEDTIME
     Dates: start: 202403
  2. LUMRYZ [Suspect]
     Active Substance: SODIUM OXYBATE
  3. DULOXETINE HYDROCHLORIDE [Concomitant]
     Active Substance: DULOXETINE HYDROCHLORIDE
  4. VITAMINS [Concomitant]
     Active Substance: VITAMINS
     Dosage: UNK, 1X/DAY
  5. GABAPENTIN [Concomitant]
     Active Substance: GABAPENTIN
  6. TYLENOL ARTHRITIS PAIN [Concomitant]
     Active Substance: ACETAMINOPHEN
  7. REXULTI [Concomitant]
     Active Substance: BREXPIPRAZOLE
  8. MODAFINIL [Concomitant]
     Active Substance: MODAFINIL
  9. DICLOFENAC SODIUM [Concomitant]
     Active Substance: DICLOFENAC SODIUM
  10. LORAZEPAM [Concomitant]
     Active Substance: LORAZEPAM
  11. LISINOPRIL [Concomitant]
     Active Substance: LISINOPRIL

REACTIONS (1)
  - Fatigue [Not Recovered/Not Resolved]
